FAERS Safety Report 7571133-6 (Version None)
Quarter: 2011Q2

REPORT INFORMATION
  Report Type: 
  Country: None (occurrence: None)
  Receive Date: 20110624
  Receipt Date: 20110617
  Transmission Date: 20111010
  Serious: Yes (Life-Threatening, Hospitalization, Other)
  Sender: FDA-Public Use
  Company Number: US-ACTELION-A-US2011-47566

PATIENT

DRUGS (2)
  1. TRACLEER [Suspect]
     Indication: PULMONARY ARTERIAL HYPERTENSION
     Dosage: UNK
     Route: 048
     Dates: start: 20100914
  2. COUMADIN [Concomitant]

REACTIONS (6)
  - ABDOMINAL DISTENSION [None]
  - PROCEDURAL COMPLICATION [None]
  - NAUSEA [None]
  - SURGERY [None]
  - ABDOMINAL PAIN [None]
  - POSTOPERATIVE ADHESION [None]
